FAERS Safety Report 9557527 (Version 1)
Quarter: 2013Q3

REPORT INFORMATION
  Report Type: Spontaneous
  Country: US (occurrence: None)
  Receive Date: 20130726
  Receipt Date: 20130726
  Transmission Date: 20140515
  Serious: Yes (Hospitalization)
  Sender: FDA-Public Use
  Company Number: UTC-029608

PATIENT
  Age: 46 Year
  Sex: Female
  Weight: 86.36 kg

DRUGS (3)
  1. REMODULIN (2.5 MG/ML, INJECTION FOR INFUSION) (TREPROSTINIL SODIUM) [Suspect]
     Indication: COR PULMONALE CHRONIC
     Dosage: 73.44 UG/KG (0.051 UG/KG, 1 IN 1 MIN), IVDRP
     Route: 041
     Dates: start: 20101115
  2. ADCIRCA (TADALAFIL) [Concomitant]
  3. TRACLEER (BOSENTAN) [Concomitant]

REACTIONS (1)
  - Device related infection [None]
